FAERS Safety Report 5651239-9 (Version None)
Quarter: 2008Q1

REPORT INFORMATION
  Report Type: 
  Country: None (occurrence: None)
  Receive Date: 20080131
  Receipt Date: 20071219
  Transmission Date: 20080703
  Serious: No
  Sender: FDA-Public Use
  Company Number: US200712004213

PATIENT
  Age: 48 Year
  Sex: Male
  Weight: 106.6 kg

DRUGS (10)
  1. BYETTA [Suspect]
     Indication: TYPE 2 DIABETES MELLITUS
     Dosage: 5 UG, 2/D, SUBCUTANEOUS
     Route: 058
     Dates: start: 20071101
  2. EXENATIDE 5MCG PEN, DISPOSABLE DEVICE (EXENATIDE PEN (5MCG)) PEN,DISPO [Concomitant]
  3. METFORMIN HCL [Concomitant]
  4. AMARYL [Concomitant]
  5. MAGNESIUM OXIDE (MAGNESIUM OXIDE) [Concomitant]
  6. ALLEGRA [Concomitant]
  7. LIPITOR [Concomitant]
  8. LISINOPRIL [Concomitant]
  9. NEXIUM [Concomitant]
  10. REQUIP [Concomitant]

REACTIONS (1)
  - FAECES DISCOLOURED [None]
